FAERS Safety Report 4570639-1 (Version None)
Quarter: 2005Q1

REPORT INFORMATION
  Report Type: 
  Country: None (occurrence: None)
  Receive Date: 20050204
  Receipt Date: 20050120
  Transmission Date: 20050727
  Serious: Yes (Congenital Anomaly)
  Sender: FDA-Public Use
  Company Number: GB-JNJFOC-20050105307

PATIENT
  Age: 20 Month
  Sex: Female

DRUGS (1)
  1. OVEX [Suspect]
     Indication: DRUG USE FOR UNKNOWN INDICATION
     Route: 015

REACTIONS (3)
  - ASTHENIA [None]
  - DIFFICULTY IN WALKING [None]
  - FOOT DEFORMITY [None]
